FAERS Safety Report 8764406 (Version 2)
Quarter: 2012Q4

REPORT INFORMATION
  Report Type: 
  Country: US (occurrence: US)
  Receive Date: 20120831
  Receipt Date: 20121022
  Transmission Date: 20130627
  Serious: Yes (Hospitalization, Other)
  Sender: FDA-Public Use
  Company Number: PHEH2012US016946

PATIENT
  Age: 79 Year
  Sex: Female
  Weight: 95.69 kg

DRUGS (6)
  1. RECLAST [Suspect]
     Indication: OSTEOPOROSIS
     Dosage: 5 mg, UNK
     Route: 042
     Dates: start: 20120820
  2. SYNTHROID [Concomitant]
  3. HYDROCHLOROTHIAZIDE [Concomitant]
     Indication: HYPERTENSION
     Dosage: 25 mg, QD
     Route: 048
     Dates: start: 2006
  4. TOPROL XL [Concomitant]
     Indication: HYPERTENSION
     Dosage: 100 mg, QD
     Route: 048
     Dates: start: 2006
  5. VITAMIN D [Concomitant]
     Indication: OSTEOPOROSIS
     Dosage: 2000 U, QD
     Route: 048
     Dates: start: 2006
  6. ZESTRIL [Concomitant]
     Indication: HYPERTENSION
     Dosage: 40 mg, QD
     Route: 048

REACTIONS (9)
  - Hyponatraemia [Recovered/Resolved]
  - Asthenia [Recovered/Resolved]
  - Dehydration [Recovered/Resolved]
  - Vomiting [Unknown]
  - Diarrhoea [Unknown]
  - Nausea [Recovered/Resolved]
  - Decreased appetite [Recovered/Resolved]
  - Hypophagia [Recovered/Resolved]
  - Myalgia [Recovered/Resolved]
